FAERS Safety Report 25562580 (Version 2)
Quarter: 2025Q3

REPORT INFORMATION
  Report Type: Spontaneous
  Country: EU (occurrence: EU)
  Receive Date: 20250716
  Receipt Date: 20250811
  Transmission Date: 20251020
  Serious: Yes (Hospitalization, Other)
  Sender: SANDOZ
  Company Number: EU-BRISTOL-MYERS SQUIBB COMPANY-2025-072058

PATIENT
  Age: 65 Year
  Sex: Female
  Weight: 70 kg

DRUGS (12)
  1. CARBOPLATIN [Suspect]
     Active Substance: CARBOPLATIN
     Indication: Lung neoplasm malignant
     Route: 065
     Dates: start: 20250324
  2. NELVUTAMIG [Suspect]
     Active Substance: NELVUTAMIG
     Route: 042
     Dates: start: 20250324
  3. NELVUTAMIG [Suspect]
     Active Substance: NELVUTAMIG
     Indication: Lung neoplasm malignant
     Route: 042
     Dates: start: 20250324
  4. NELVUTAMIG [Suspect]
     Active Substance: NELVUTAMIG
     Route: 065
     Dates: start: 20250324
  5. NIVOLUMAB [Suspect]
     Active Substance: NIVOLUMAB
     Route: 042
     Dates: start: 20250324
  6. NIVOLUMAB [Suspect]
     Active Substance: NIVOLUMAB
     Indication: Lung neoplasm malignant
     Route: 042
     Dates: start: 20250324
  7. NIVOLUMAB [Suspect]
     Active Substance: NIVOLUMAB
     Route: 065
     Dates: start: 20250324
  8. PEMETREXED [Suspect]
     Active Substance: PEMETREXED
     Indication: Lung neoplasm malignant
     Route: 065
     Dates: start: 20250324
  9. PEMETREXED [Suspect]
     Active Substance: PEMETREXED
     Indication: Non-small cell lung cancer
  10. Ossigeno [Concomitant]
     Indication: Dyspnoea
     Dosage: 4,000 ML OXYGEN*CRYOGEN  14,000 L FIXED
     Route: 055
     Dates: start: 20250212
  11. PANTOPRAZOLE [Concomitant]
     Active Substance: PANTOPRAZOLE
     Indication: Gastrointestinal disorder
     Route: 065
     Dates: start: 20250528
  12. Paracodina [Concomitant]
     Indication: Cough
     Dosage: DOSE: 30 DROPS AS NEEDED OS DROPS  BOTTLE 15G
     Route: 048
     Dates: start: 20250212

REACTIONS (2)
  - Immune thrombocytopenia [Not Recovered/Not Resolved]
  - Anaemia [Unknown]

NARRATIVE: CASE EVENT DATE: 20250415
